FAERS Safety Report 20111168 (Version 2)
Quarter: 2022Q4

REPORT INFORMATION
  Report Type: Spontaneous
  Country: US (occurrence: US)
  Receive Date: 20211125
  Receipt Date: 20221005
  Transmission Date: 20230112
  Serious: Yes (Other)
  Sender: FDA-Public Use
  Company Number: US-SA-SAC20211119000430

PATIENT
  Age: 59 Year
  Sex: Male

DRUGS (2)
  1. ZANTAC [Suspect]
     Active Substance: RANITIDINE HYDROCHLORIDE
     Indication: Dyspepsia
     Dosage: 150 MG, QD
     Dates: start: 198211, end: 201810
  2. ZANTAC [Suspect]
     Active Substance: RANITIDINE HYDROCHLORIDE
     Indication: Intestinal ulcer

REACTIONS (8)
  - Bladder cancer stage IV [Unknown]
  - Renal cancer stage IV [Not Recovered/Not Resolved]
  - Disease progression [Not Recovered/Not Resolved]
  - Hepatic cancer stage IV [Not Recovered/Not Resolved]
  - Disease progression [Not Recovered/Not Resolved]
  - Lung carcinoma cell type unspecified stage IV [Not Recovered/Not Resolved]
  - Disease progression [Not Recovered/Not Resolved]
  - Prostate cancer stage I [Unknown]

NARRATIVE: CASE EVENT DATE: 19950601
